FAERS Safety Report 4680116-5 (Version None)
Quarter: 2005Q2

REPORT INFORMATION
  Report Type: 
  Country: None (occurrence: None)
  Receive Date: 20050602
  Receipt Date: 20050510
  Transmission Date: 20051028
  Serious: Yes (Hospitalization, Disabling)
  Sender: FDA-Public Use
  Company Number: US-SANOFI-SYNTHELABO-A03200501431

PATIENT
  Sex: Female
  Weight: 60.3 kg

DRUGS (5)
  1. ELOXATIN [Suspect]
     Indication: COLON CANCER METASTATIC
     Route: 042
     Dates: start: 20050207, end: 20050207
  2. FLUOROURACIL [Concomitant]
     Indication: COLON CANCER METASTATIC
     Dosage: UNK
     Route: 042
  3. LEUCOVORIN [Concomitant]
     Indication: COLON CANCER METASTATIC
     Dosage: UNK
     Route: 042
  4. AVASTIN [Concomitant]
     Indication: COLON CANCER METASTATIC
     Dosage: UNK
     Route: 042
  5. LEVOFLOXACIN [Concomitant]
     Dosage: UNK
     Route: 048
     Dates: start: 20050101

REACTIONS (6)
  - ARTHRALGIA [None]
  - DIALYSIS [None]
  - LOCAL SWELLING [None]
  - PYREXIA [None]
  - RASH [None]
  - RENAL FAILURE [None]
